FAERS Safety Report 6411170-8 (Version None)
Quarter: 2009Q4

REPORT INFORMATION
  Report Type: 
  Country: None (occurrence: None)
  Receive Date: 20091022
  Receipt Date: 20091013
  Transmission Date: 20100525
  Serious: Yes (Other)
  Sender: FDA-Public Use
  Company Number: US-PFIZER INC-2006144944

PATIENT
  Sex: Female
  Weight: 70 kg

DRUGS (4)
  1. DEPO-PROVERA [Suspect]
     Dosage: UNK
     Route: 030
     Dates: start: 20000101, end: 20051201
  2. PRILOSEC [Concomitant]
     Indication: DYSPEPSIA
     Dosage: UNK
     Dates: start: 20020101
  3. FAMOTIDINE [Concomitant]
     Dosage: UNK
     Dates: start: 20010101
  4. CALCIUM [Concomitant]
     Dosage: 1500 MG, UNK

REACTIONS (2)
  - OSTEOPOROSIS [None]
  - RIB FRACTURE [None]
